FAERS Safety Report 19155933 (Version 4)
Quarter: 2024Q2

REPORT INFORMATION
  Report Type: Spontaneous
  Country: US (occurrence: US)
  Receive Date: 20210420
  Receipt Date: 20240424
  Transmission Date: 20240716
  Serious: Yes (Other)
  Sender: FDA-Public Use
  Company Number: US-JNJFOC-20210426345

PATIENT
  Age: 81 Year
  Sex: Female

DRUGS (16)
  1. ELMIRON [Suspect]
     Active Substance: PENTOSAN POLYSULFATE SODIUM
     Indication: Cystitis interstitial
     Route: 048
  2. ELMIRON [Suspect]
     Active Substance: PENTOSAN POLYSULFATE SODIUM
     Route: 048
     Dates: start: 20150331, end: 20180411
  3. ELMIRON [Suspect]
     Active Substance: PENTOSAN POLYSULFATE SODIUM
     Route: 048
     Dates: start: 20180412, end: 20190311
  4. ELMIRON [Suspect]
     Active Substance: PENTOSAN POLYSULFATE SODIUM
     Route: 048
     Dates: start: 2019, end: 201912
  5. SYNTHROID [Concomitant]
     Active Substance: LEVOTHYROXINE SODIUM
     Indication: Hypothyroidism
     Dates: start: 19980101
  6. MIRAPEX [Concomitant]
     Active Substance: PRAMIPEXOLE DIHYDROCHLORIDE
     Indication: Restless legs syndrome
     Dates: start: 20190101
  7. FUROSEMIDE [Concomitant]
     Active Substance: FUROSEMIDE
     Indication: Lymphoedema
     Dates: start: 20190101
  8. SINEMET [Concomitant]
     Active Substance: CARBIDOPA\LEVODOPA
     Indication: Restless legs syndrome
     Dates: start: 20151012
  9. CEPHALEXIN [Concomitant]
     Active Substance: CEPHALEXIN
     Indication: Postoperative care
     Dates: start: 20150413, end: 20150416
  10. OMEPRAZOLE [Concomitant]
     Active Substance: OMEPRAZOLE
     Indication: Dyspepsia
     Dates: start: 20150707
  11. GABAPENTIN [Concomitant]
     Active Substance: GABAPENTIN
     Indication: Pain
     Dates: start: 20180301
  12. BACLOFEN [Concomitant]
     Active Substance: BACLOFEN
     Indication: Muscle spasms
     Dates: start: 20180301
  13. TRAMADOL [Concomitant]
     Active Substance: TRAMADOL\TRAMADOL HYDROCHLORIDE
     Indication: Pain
     Dates: start: 20150319
  14. NITROFURANTOIN [Concomitant]
     Active Substance: NITROFURANTOIN
     Indication: Urinary tract infection
     Dates: start: 20160314, end: 20160319
  15. CLOBETASOL [Concomitant]
     Active Substance: CLOBETASOL
     Indication: Lichen sclerosus
     Dates: start: 20180101
  16. TOLTERODINE [Concomitant]
     Active Substance: TOLTERODINE
     Indication: Hypertonic bladder
     Dates: start: 20150209

REACTIONS (4)
  - Neovascular age-related macular degeneration [Not Recovered/Not Resolved]
  - Vitreous detachment [Unknown]
  - Corneal dystrophy [Unknown]
  - Off label use [Unknown]

NARRATIVE: CASE EVENT DATE: 20150331
